FAERS Safety Report 8168624-6 (Version None)
Quarter: 2012Q1

REPORT INFORMATION
  Report Type: 
  Country: None (occurrence: None)
  Receive Date: 20120222
  Receipt Date: 20120213
  Transmission Date: 20120608
  Serious: Yes (Other)
  Sender: FDA-Public Use
  Company Number: AUR-APL-2012-00930

PATIENT
  Age: 35 Year
  Sex: Male
  Weight: 96 kg

DRUGS (5)
  1. IBUPROFEN [Concomitant]
  2. MICONAZOLE (MICONAZOLE) [Concomitant]
  3. METHADONE HCL [Concomitant]
  4. LANSOPRAZOLE [Concomitant]
  5. NAPROXEN [Suspect]
     Indication: PRODUCT USED FOR UNKNOWN INDICATION
     Dates: start: 20120102

REACTIONS (1)
  - OEDEMA MOUTH [None]
